FAERS Safety Report 14601040 (Version 3)
Quarter: 2018Q1

REPORT INFORMATION
  Report Type: Report from Study
  Country: None (occurrence: DE)
  Receive Date: 20180305
  Receipt Date: 20180316
  Transmission Date: 20180509
  Serious: Yes (Hospitalization)
  Sender: FDA-Public Use
  Company Number: DE-ABBVIE-18P-062-2267072-00

PATIENT
  Age: 52 Year
  Sex: Male
  Weight: 86 kg

DRUGS (12)
  1. VENETOCLAX. [Suspect]
     Active Substance: VENETOCLAX
     Dosage: CYCLE 2;  DAYS 15-21 (200 MG PER DAY)
     Route: 048
  2. RITUXIMAB. [Concomitant]
     Active Substance: RITUXIMAB
     Dosage: LAST DOSE ADMINISTERED WAS ON 15 FEB 2018
     Route: 042
  3. ZEPROCLON [Concomitant]
     Indication: PRODUCT USED FOR UNKNOWN INDICATION
     Route: 048
     Dates: start: 20171117
  4. VENETOCLAX. [Suspect]
     Active Substance: VENETOCLAX
     Dosage: CYCLE 2; DAYS 1- 7 (50 MG PER DAY)
     Route: 048
  5. VENETOCLAX. [Suspect]
     Active Substance: VENETOCLAX
     Dosage: CYCLE 2;  DAYS 8-14 (100 MG PER DAY)
     Route: 048
  6. RITUXIMAB. [Concomitant]
     Active Substance: RITUXIMAB
     Indication: CHRONIC LYMPHOCYTIC LEUKAEMIA
     Route: 042
     Dates: start: 20170226, end: 20170226
  7. ALLOPURINOL. [Concomitant]
     Active Substance: ALLOPURINOL
     Indication: PRODUCT USED FOR UNKNOWN INDICATION
     Route: 048
     Dates: start: 20171027
  8. VENETOCLAX. [Suspect]
     Active Substance: VENETOCLAX
     Indication: CHRONIC LYMPHOCYTIC LEUKAEMIA
     Dosage: CYCLE 1;  DAYS 22- 58
     Route: 048
     Dates: start: 20171117
  9. VENETOCLAX. [Suspect]
     Active Substance: VENETOCLAX
     Dosage: CYCLE 2;  DAYS 22-28  (400 MG PER DAY)
     Route: 048
  10. ACICLOVIR [Concomitant]
     Active Substance: ACYCLOVIR
     Indication: PRODUCT USED FOR UNKNOWN INDICATION
     Route: 048
     Dates: start: 20171027
  11. COTRIMOXAZOLE [Concomitant]
     Active Substance: SULFAMETHOXAZOLE\TRIMETHOPRIM
     Indication: PRODUCT USED FOR UNKNOWN INDICATION
     Route: 048
     Dates: start: 20171027
  12. VENETOCLAX. [Suspect]
     Active Substance: VENETOCLAX
     Dosage: CYCLES 3 (400 MG PER DAY)
     Route: 048

REACTIONS (2)
  - Influenza [Recovered/Resolved]
  - Febrile neutropenia [Recovered/Resolved]

NARRATIVE: CASE EVENT DATE: 20180221
